FAERS Safety Report 7705624-1 (Version None)
Quarter: 2011Q3

REPORT INFORMATION
  Report Type: 
  Country: None (occurrence: None)
  Receive Date: 20110824
  Receipt Date: 20110816
  Transmission Date: 20111222
  Serious: No
  Sender: FDA-Public Use
  Company Number: US-BAYER-2011-073803

PATIENT
  Sex: Female

DRUGS (1)
  1. MIRENA [Suspect]
     Indication: MENORRHAGIA
     Dosage: 20 MCG/24HR, CONT
     Route: 015

REACTIONS (5)
  - DEVICE EXPULSION [None]
  - PRESYNCOPE [None]
  - ABDOMINAL PAIN [None]
  - VAGINAL DISCHARGE [None]
  - PROCEDURAL PAIN [None]
